FAERS Safety Report 20585339 (Version 1)
Quarter: 2022Q1

REPORT INFORMATION
  Report Type: Spontaneous
  Country: US (occurrence: US)
  Receive Date: 20220312
  Receipt Date: 20220312
  Transmission Date: 20220423
  Serious: No
  Sender: FDA-Public Use
  Company Number: US-SANOFI-01004430

PATIENT
  Age: 66 Year
  Sex: Female

DRUGS (1)
  1. LANTUS SOLOSTAR [Suspect]
     Active Substance: INSULIN GLARGINE
     Indication: Diabetes mellitus
     Dosage: DRUG STRUCTURE DOSAGE : 60 UNITS AM + 50 UNITS PM DRUG INTERVAL DOSAGE : TWICE A DAY DRUG TREATMENT

REACTIONS (2)
  - Wrong technique in device usage process [Recovering/Resolving]
  - Inappropriate schedule of product administration [Unknown]
